FAERS Safety Report 25591946 (Version 1)
Quarter: 2025Q3

REPORT INFORMATION
  Report Type: Spontaneous
  Country: EU (occurrence: EU)
  Receive Date: 20250722
  Receipt Date: 20250722
  Transmission Date: 20251020
  Serious: Yes (Death)
  Sender: MYLAN
  Company Number: None

PATIENT
  Age: 83 Year
  Sex: Male

DRUGS (4)
  1. FENTANYL [Suspect]
     Active Substance: FENTANYL
     Indication: Palliative care
     Dosage: 50 MICROGRAM, QD (PALLIATIVE CARE)
     Dates: start: 20250321, end: 20250322
  2. FENTANYL [Suspect]
     Active Substance: FENTANYL
     Dosage: 50 MICROGRAM, QD (PALLIATIVE CARE)
     Route: 058
     Dates: start: 20250321, end: 20250322
  3. FENTANYL [Suspect]
     Active Substance: FENTANYL
     Dosage: 50 MICROGRAM, QD (PALLIATIVE CARE)
     Route: 058
     Dates: start: 20250321, end: 20250322
  4. FENTANYL [Suspect]
     Active Substance: FENTANYL
     Dosage: 50 MICROGRAM, QD (PALLIATIVE CARE)
     Dates: start: 20250321, end: 20250322

REACTIONS (1)
  - Wrong rate [Fatal]

NARRATIVE: CASE EVENT DATE: 20250321
